FAERS Safety Report 4754453-X (Version None)
Quarter: 2005Q3

REPORT INFORMATION
  Report Type: 
  Country: None (occurrence: None)
  Receive Date: 20050829
  Receipt Date: 20050816
  Transmission Date: 20060218
  Serious: Yes (Other)
  Sender: FDA-Public Use
  Company Number: PHEH2005US09139

PATIENT
  Age: 42 Month
  Sex: Male

DRUGS (4)
  1. BENADRYL ^PFIZER WARNER-LAMBERT^ [Suspect]
     Dosage: 2 TEASPOONFULS
     Dates: start: 20050802
  2. ELIDEL [Suspect]
     Indication: ECZEMA
     Dosage: UNK, QD
     Route: 061
     Dates: start: 20050616
  3. ELIDEL [Suspect]
     Dosage: 1X IN 3 TO 5 DAYS
     Route: 061
  4. ELIDEL [Suspect]
     Dosage: 1X IN A COUPLE OF WEEKS, PRN
     Route: 061
     Dates: end: 20050811

REACTIONS (8)
  - ABNORMAL BEHAVIOUR [None]
  - CONTUSION [None]
  - DISORIENTATION [None]
  - PALPITATIONS [None]
  - PRURITUS [None]
  - PSYCHOMOTOR HYPERACTIVITY [None]
  - RASH [None]
  - RESTLESSNESS [None]
